FAERS Safety Report 20635797 (Version 2)
Quarter: 2022Q2

REPORT INFORMATION
  Report Type: Spontaneous
  Country: CN (occurrence: None)
  Receive Date: 20220325
  Receipt Date: 20220422
  Transmission Date: 20220720
  Serious: Yes (Hospitalization)
  Sender: FDA-Public Use
  Company Number: CN-ROCHE-3051673

PATIENT
  Age: 48 Year
  Sex: Female
  Weight: 60 kg

DRUGS (3)
  1. TRASTUZUMAB [Suspect]
     Active Substance: TRASTUZUMAB
     Indication: Breast cancer
     Route: 041
     Dates: start: 20220109
  2. DOCETAXEL [Suspect]
     Active Substance: DOCETAXEL
     Indication: Breast cancer
     Route: 041
     Dates: start: 20220109
  3. CYCLOPHOSPHAMIDE [Suspect]
     Active Substance: CYCLOPHOSPHAMIDE
     Indication: Breast cancer
     Route: 041
     Dates: start: 20220109

REACTIONS (2)
  - Rash [Recovering/Resolving]
  - Ear pain [Recovering/Resolving]

NARRATIVE: CASE EVENT DATE: 20220114
